FAERS Safety Report 5032599-9 (Version None)
Quarter: 2006Q2

REPORT INFORMATION
  Report Type: 
  Country: None (occurrence: None)
  Receive Date: 20060622
  Receipt Date: 20060614
  Transmission Date: 20061013
  Serious: Yes (Hospitalization)
  Sender: FDA-Public Use
  Company Number: FR-JNJFOC-20060603501

PATIENT
  Age: 28 Year
  Sex: Male

DRUGS (2)
  1. HALDOL [Suspect]
     Route: 030
  2. HALDOL [Suspect]
     Indication: PSYCHOTIC DISORDER
     Route: 030

REACTIONS (2)
  - MEDICATION ERROR [None]
  - OVERDOSE [None]
